FAERS Safety Report 25228576 (Version 1)
Quarter: 2025Q2

REPORT INFORMATION
  Report Type: Spontaneous
  Country: CN (occurrence: CN)
  Receive Date: 20250423
  Receipt Date: 20250423
  Transmission Date: 20250716
  Serious: Yes (Hospitalization)
  Sender: ALEXION PHARMACEUTICALS
  Company Number: CN-ASTRAZENECA-202504CHN016554CN

PATIENT
  Age: 62 Year
  Weight: 44 kg

DRUGS (1)
  1. DAPAGLIFLOZIN [Suspect]
     Active Substance: DAPAGLIFLOZIN
     Indication: Blood glucose decreased
     Dosage: 10.000 MILLIGRAM, QD

REACTIONS (3)
  - Asthenia [Recovering/Resolving]
  - Decreased appetite [Unknown]
  - Breath odour [Unknown]
